FAERS Safety Report 23626784 (Version 1)
Quarter: 2024Q1

REPORT INFORMATION
  Report Type: Report from Study
  Country: IN (occurrence: IN)
  Receive Date: 20240313
  Receipt Date: 20240313
  Transmission Date: 20240410
  Serious: Yes (Other)
  Sender: FDA-Public Use
  Company Number: IN-PFIZER INC-202400062268

PATIENT
  Age: 67 Year
  Sex: Female

DRUGS (2)
  1. CARBOPLATIN [Suspect]
     Active Substance: CARBOPLATIN
     Indication: Non-small cell lung cancer
     Dosage: UNK, CYCLIC
  2. PACLITAXEL [Suspect]
     Active Substance: PACLITAXEL
     Indication: Non-small cell lung cancer
     Dosage: UNK, CYCLIC

REACTIONS (8)
  - Myelosuppression [Unknown]
  - Cardiomyopathy [Unknown]
  - Neuropathy peripheral [Unknown]
  - Anaemia [Unknown]
  - Vomiting [Unknown]
  - Alopecia [Unknown]
  - Skin disorder [Unknown]
  - Hepatic enzyme abnormal [Unknown]
